FAERS Safety Report 9708757 (Version 2)
Quarter: 2014Q2

REPORT INFORMATION
  Report Type: Spontaneous
  Country: JP (occurrence: JP)
  Receive Date: 20131125
  Receipt Date: 20140428
  Transmission Date: 20141212
  Serious: Yes (Hospitalization)
  Sender: FDA-Public Use
  Company Number: JP-VIIV HEALTHCARE LIMITED-B0947254A

PATIENT
  Sex: Female
  Weight: 2.41 kg

DRUGS (5)
  1. RETROVIR [Suspect]
     Indication: HIV INFECTION
     Route: 064
  2. EPIVIR [Suspect]
     Indication: HIV INFECTION
     Route: 064
  3. RETROVIR [Suspect]
     Indication: PROPHYLAXIS
     Route: 064
  4. KALETRA [Suspect]
     Indication: HIV INFECTION
     Route: 064
  5. RETROVIR [Concomitant]
     Route: 048

REACTIONS (3)
  - Respiratory disorder neonatal [Recovered/Resolved]
  - Low birth weight baby [Unknown]
  - Foetal exposure during pregnancy [Unknown]
